FAERS Safety Report 13343401 (Version 2)
Quarter: 2017Q2

REPORT INFORMATION
  Report Type: Report from Study
  Country: US (occurrence: US)
  Receive Date: 20170316
  Receipt Date: 20170411
  Transmission Date: 20170830
  Serious: Yes (Hospitalization, Other)
  Sender: FDA-Public Use
  Company Number: US-BAYER-2017-020959

PATIENT
  Age: 59 Year
  Sex: Female

DRUGS (10)
  1. STIVARGA [Suspect]
     Active Substance: REGORAFENIB
     Indication: COLORECTAL CANCER
     Dosage: 80 MG, QD
     Route: 048
     Dates: start: 20170203, end: 20170207
  2. LOSARTAN POTASSIUM W/HYDROCHLOROTHIAZIDE [Concomitant]
     Active Substance: HYDROCHLOROTHIAZIDE\LOSARTAN POTASSIUM
  3. VENLAFAXINE [Concomitant]
     Active Substance: VENLAFAXINE HYDROCHLORIDE
  4. VITAMIN D3 [Concomitant]
     Active Substance: CHOLECALCIFEROL
  5. COMPAZINE [Concomitant]
     Active Substance: PROCHLORPERAZINE MALEATE
  6. STIVARGA [Suspect]
     Active Substance: REGORAFENIB
     Indication: COLORECTAL CANCER
     Dosage: 120 MG, QD
     Route: 048
     Dates: start: 20170124, end: 20170130
  7. STIVARGA [Suspect]
     Active Substance: REGORAFENIB
     Indication: COLORECTAL CANCER
     Dosage: 120 MG, QD
     Route: 048
     Dates: start: 20170208, end: 201702
  8. ZOFRAN [Concomitant]
     Active Substance: ONDANSETRON HYDROCHLORIDE
  9. NORVASC [Concomitant]
     Active Substance: AMLODIPINE BESYLATE
  10. STIVARGA [Suspect]
     Active Substance: REGORAFENIB
     Indication: COLORECTAL CANCER
     Dosage: 80 MG, QD
     Route: 048
     Dates: start: 20170212, end: 20170226

REACTIONS (17)
  - Nausea [None]
  - Asthenia [None]
  - Palmar-plantar erythrodysaesthesia syndrome [Recovering/Resolving]
  - Feeding disorder [None]
  - Epistaxis [None]
  - Fatigue [None]
  - Fatigue [None]
  - Dehydration [Recovering/Resolving]
  - Abdominal pain [Recovering/Resolving]
  - Dizziness [None]
  - Oral pain [None]
  - Pyrexia [Recovering/Resolving]
  - Blood pressure increased [None]
  - Underdose [None]
  - Fluid intake reduced [None]
  - Pain in extremity [None]
  - Myalgia [None]

NARRATIVE: CASE EVENT DATE: 2017
